FAERS Safety Report 9015523 (Version 1)
Quarter: 2013Q1

REPORT INFORMATION
  Report Type: Spontaneous
  Country: US (occurrence: None)
  Receive Date: 20130102
  Receipt Date: 20130102
  Transmission Date: 20140127
  Serious: Yes (Other)
  Sender: FDA-Public Use
  Company Number: 2012P1068145

PATIENT
  Age: 42 Year
  Sex: Male
  Weight: 113.4 kg

DRUGS (2)
  1. PREDNISONE TABLETS USP 5MG (NO PREF. NAME) [Suspect]
     Route: 048
     Dates: start: 200906
  2. PREDNISONE TABLETS USP 5MG (NO PREF. NAME) [Suspect]
     Route: 048
     Dates: start: 200906

REACTIONS (5)
  - Muscle spasms [None]
  - Fatigue [None]
  - Nervous system disorder [None]
  - Chronic graft versus host disease [None]
  - Food allergy [None]
